FAERS Safety Report 7605862-2 (Version None)
Quarter: 2011Q3

REPORT INFORMATION
  Report Type: 
  Country: None (occurrence: None)
  Receive Date: 20110713
  Receipt Date: 20110711
  Transmission Date: 20111222
  Serious: Yes (Death, Hospitalization)
  Sender: FDA-Public Use
  Company Number: SK-PFIZER INC-2011147599

PATIENT
  Age: 45 Year
  Sex: Female

DRUGS (2)
  1. SUTENT [Suspect]
     Indication: RENAL CANCER
     Dosage: 50 MG, 1X/DAY
     Route: 048
     Dates: start: 20100122, end: 20100301
  2. SUTENT [Suspect]
     Dosage: 37.5 MG, 1X/DAY
     Route: 048
     Dates: start: 20100301

REACTIONS (5)
  - PURPURA [None]
  - RENAL CANCER [None]
  - PLEURAL EFFUSION [None]
  - PNEUMOTHORAX [None]
  - DISEASE PROGRESSION [None]
